FAERS Safety Report 7712802-4 (Version None)
Quarter: 2011Q3

REPORT INFORMATION
  Report Type: 
  Country: None (occurrence: None)
  Receive Date: 20110826
  Receipt Date: 20110818
  Transmission Date: 20111222
  Serious: Yes (Hospitalization)
  Sender: FDA-Public Use
  Company Number: FR-GLAXOSMITHKLINE-B0740587A

PATIENT
  Sex: Male
  Weight: 29 kg

DRUGS (7)
  1. ZOFRAN [Suspect]
     Indication: PROPHYLAXIS OF NAUSEA AND VOMITING
     Route: 065
     Dates: start: 20110511
  2. VINCRISTINE [Suspect]
     Indication: RHABDOMYOSARCOMA
     Dosage: 1.6MG CYCLIC
     Route: 042
     Dates: start: 20110511
  3. PLITICAN [Suspect]
     Indication: PROPHYLAXIS
     Route: 065
     Dates: start: 20110511
  4. MORPHINE [Suspect]
     Indication: FACIAL PAIN
     Dosage: 1MGK PER DAY
     Route: 065
     Dates: start: 20110512
  5. MESNA [Suspect]
     Indication: PROPHYLAXIS
     Route: 065
     Dates: start: 20110511
  6. IFOSFAMIDE [Suspect]
     Indication: RHABDOMYOSARCOMA
     Dosage: 3200MG CYCLIC
     Route: 042
     Dates: start: 20110511, end: 20110511
  7. ACTINOMYCIN [Suspect]
     Indication: RHABDOMYOSARCOMA
     Dosage: 1.6MG CYCLIC
     Route: 042
     Dates: start: 20110511

REACTIONS (2)
  - BRADYPNOEA [None]
  - SOMNOLENCE [None]
